FAERS Safety Report 8316721 (Version 3)
Quarter: 2014Q3

REPORT INFORMATION
  Report Type: Spontaneous
  Country: DE (occurrence: DE)
  Receive Date: 20111230
  Receipt Date: 20140729
  Transmission Date: 20150326
  Serious: Yes (Life-Threatening, Hospitalization, Other)
  Sender: FDA-Public Use
  Company Number: DE-RANBAXY-2011RR-51342

PATIENT
  Age: 38 Year
  Sex: Male
  Weight: 89 kg

DRUGS (2)
  1. PARACETAMOL [Suspect]
     Active Substance: ACETAMINOPHEN
     Indication: HEADACHE
     Dosage: 2 X 500MG TABLET/ DAY, ONCE MONTHLY, IN CHANGING WITH IBUPROFEN
     Route: 048
     Dates: start: 2009, end: 20110915
  2. IBUPROFEN. [Suspect]
     Active Substance: IBUPROFEN
     Indication: HEADACHE
     Dosage: 2 X 400MG TABLET/ DAY, ONCE MONTHLY IN CHANGING WITH PARACETAMOL
     Route: 048
     Dates: start: 201108, end: 20110914

REACTIONS (1)
  - Renal failure acute [Recovering/Resolving]

NARRATIVE: CASE EVENT DATE: 20110915
